FAERS Safety Report 10300772 (Version 1)
Quarter: 2014Q3

REPORT INFORMATION
  Report Type: Other
  Country: IT (occurrence: IT)
  Receive Date: 20140714
  Receipt Date: 20140714
  Transmission Date: 20150326
  Serious: Yes (Hospitalization)
  Sender: FDA-Public Use
  Company Number: IT-LUPIN PHARMACEUTICALS INC.-2014-01263

PATIENT
  Age: 67 Year
  Sex: Male

DRUGS (4)
  1. PREGABALIN. [Suspect]
     Active Substance: PREGABALIN
     Indication: NEUROLOGICAL SYMPTOM
     Dosage: 75 MG
     Route: 065
  2. PREGABALIN. [Suspect]
     Active Substance: PREGABALIN
     Dosage: 150 MG
     Route: 065
  3. PREGABALIN. [Suspect]
     Active Substance: PREGABALIN
     Route: 065
  4. PREGABALIN. [Suspect]
     Active Substance: PREGABALIN
     Dosage: 225 MG
     Route: 065

REACTIONS (1)
  - Atrioventricular block [Unknown]
